FAERS Safety Report 16971872 (Version 1)
Quarter: 2019Q4

REPORT INFORMATION
  Report Type: Spontaneous
  Country: US (occurrence: US)
  Receive Date: 20191029
  Receipt Date: 20191029
  Transmission Date: 20200122
  Serious: Yes (Hospitalization, Other)
  Sender: FDA-Public Use
  Company Number: US-INCYTE CORPORATION-2019IN010619

PATIENT

DRUGS (1)
  1. JAKAFI [Suspect]
     Active Substance: RUXOLITINIB
     Indication: ACUTE MYELOID LEUKAEMIA
     Dosage: 20 MILLIGRAM, BID
     Route: 048

REACTIONS (11)
  - Platelet count increased [Unknown]
  - Dyspnoea [Unknown]
  - Diarrhoea [Unknown]
  - Increased tendency to bruise [Unknown]
  - Pulmonary embolism [Unknown]
  - Decreased appetite [Unknown]
  - Headache [Unknown]
  - Product dose omission [Unknown]
  - Weight decreased [Unknown]
  - Off label use [Unknown]
  - Dizziness [Unknown]
